FAERS Safety Report 7795291-3 (Version None)
Quarter: 2011Q4

REPORT INFORMATION
  Report Type: 
  Country: None (occurrence: None)
  Receive Date: 20111004
  Receipt Date: 20090220
  Transmission Date: 20120403
  Serious: Yes (Hospitalization)
  Sender: FDA-Public Use
  Company Number: BR-ASTRAZENECA-2009UW04790

PATIENT
  Age: 77 Year
  Sex: Female

DRUGS (3)
  1. METOPROLOL SUCCINATE [Suspect]
     Route: 048
     Dates: start: 20060101
  2. ATACAND [Suspect]
     Indication: HYPERTENSION
     Route: 048
     Dates: start: 20060101, end: 20081101
  3. ATACAND HCT [Suspect]
     Dosage: 8/12.5 MG HALF TABLET PER DAY
     Route: 048

REACTIONS (2)
  - ISCHAEMIA [None]
  - HEADACHE [None]
